FAERS Safety Report 25423317 (Version 1)
Quarter: 2025Q2

REPORT INFORMATION
  Report Type: Spontaneous
  Country: CN (occurrence: CN)
  Receive Date: 20250611
  Receipt Date: 20250611
  Transmission Date: 20250717
  Serious: Yes (Other)
  Sender: AMGEN
  Company Number: CN-AMGEN-CHNSP2025109202

PATIENT
  Age: 54 Year
  Sex: Male

DRUGS (6)
  1. CARFILZOMIB [Suspect]
     Active Substance: CARFILZOMIB
     Indication: Plasma cell myeloma refractory
     Route: 065
     Dates: start: 202304
  2. DARATUMUMAB [Suspect]
     Active Substance: DARATUMUMAB
     Indication: Plasma cell myeloma refractory
     Route: 065
     Dates: start: 202304
  3. DEXAMETHASONE [Suspect]
     Active Substance: DEXAMETHASONE
     Indication: Plasma cell myeloma refractory
     Route: 065
     Dates: start: 202304
  4. FLUDARABINE [Concomitant]
     Active Substance: FLUDARABINE PHOSPHATE
     Route: 065
     Dates: start: 202308
  5. CYCLOPHOSPHAMIDE [Concomitant]
     Active Substance: CYCLOPHOSPHAMIDE
     Route: 065
     Dates: start: 202308
  6. SINTILIMAB [Concomitant]
     Active Substance: SINTILIMAB
     Route: 065

REACTIONS (4)
  - Plasma cell myeloma refractory [Unknown]
  - Cytokine release syndrome [Recovered/Resolved]
  - Therapy partial responder [Unknown]
  - Off label use [Unknown]

NARRATIVE: CASE EVENT DATE: 20230101
